FAERS Safety Report 14473675 (Version 1)
Quarter: 2018Q1

REPORT INFORMATION
  Report Type: Spontaneous
  Country: US (occurrence: US)
  Receive Date: 20180201
  Receipt Date: 20180201
  Transmission Date: 20180509
  Serious: No
  Sender: FDA-Public Use
  Company Number: US-BAYER-2018-019702

PATIENT
  Sex: Female

DRUGS (13)
  1. TYLENOL [Suspect]
     Active Substance: ACETAMINOPHEN
  2. SUMATRIPTAN SUCCINATE. [Concomitant]
     Active Substance: SUMATRIPTAN SUCCINATE
  3. AMITRIPTYLINE HCL [Concomitant]
     Active Substance: AMITRIPTYLINE
  4. PREDNISONE. [Concomitant]
     Active Substance: PREDNISONE
  5. OXYBUTYNIN CHLORIDE. [Concomitant]
     Active Substance: OXYBUTYNIN CHLORIDE
  6. CITALOPRAM [Concomitant]
     Active Substance: CITALOPRAM HYDROBROMIDE
  7. AMOXICILLIN. [Concomitant]
     Active Substance: AMOXICILLIN
  8. BETASERON [Suspect]
     Active Substance: INTERFERON BETA-1B
     Indication: MULTIPLE SCLEROSIS
     Dosage: 025 MG, QOD
     Route: 058
     Dates: start: 2007
  9. CALCIUM [Concomitant]
     Active Substance: CALCIUM
  10. GABAPENTIN. [Concomitant]
     Active Substance: GABAPENTIN
  11. PRAVASTATIN. [Concomitant]
     Active Substance: PRAVASTATIN
  12. OXYBUTYNIN CHLORIDE. [Concomitant]
     Active Substance: OXYBUTYNIN CHLORIDE
  13. METFORMIN HCL [Concomitant]
     Active Substance: METFORMIN HYDROCHLORIDE

REACTIONS (2)
  - Chills [Not Recovered/Not Resolved]
  - Influenza like illness [Not Recovered/Not Resolved]
